FAERS Safety Report 4876714-6 (Version None)
Quarter: 2006Q1

REPORT INFORMATION
  Report Type: 
  Country: None (occurrence: None)
  Receive Date: 20060110
  Receipt Date: 20051213
  Transmission Date: 20060701
  Serious: Yes (Disabling, Other)
  Sender: FDA-Public Use
  Company Number: US-MERCK-0512USA02089

PATIENT
  Age: 39 Year
  Sex: Male
  Weight: 89 kg

DRUGS (2)
  1. VIOXX [Suspect]
     Indication: ARTHRALGIA
     Route: 048
     Dates: start: 19980101, end: 20000101
  2. VIOXX [Suspect]
     Route: 048
     Dates: start: 19980101, end: 20000101

REACTIONS (5)
  - ANGINA PECTORIS [None]
  - CARDIAC FAILURE CONGESTIVE [None]
  - HEPATITIS C [None]
  - HIV INFECTION [None]
  - MYOCARDIAL INFARCTION [None]
